FAERS Safety Report 5011997-3 (Version None)
Quarter: 2006Q2

REPORT INFORMATION
  Report Type: 
  Country: None (occurrence: None)
  Receive Date: 20060526
  Receipt Date: 20060516
  Transmission Date: 20061013
  Serious: Yes (Other)
  Sender: FDA-Public Use
  Company Number: FI-BRISTOL-MYERS SQUIBB COMPANY-13391156

PATIENT
  Age: 28 Year
  Sex: Male

DRUGS (3)
  1. BUSPAR [Suspect]
     Indication: ANXIETY
     Dosage: DURATION: 1-2 YEARS AGO
     Route: 048
  2. ESCITALOPRAM OXALATE [Concomitant]
     Indication: ANXIETY
     Route: 048
     Dates: start: 20050101
  3. XANOR [Concomitant]
     Route: 048
     Dates: start: 20010101

REACTIONS (3)
  - ASTHENOPIA [None]
  - EYE MOVEMENT DISORDER [None]
  - MIOSIS [None]
